FAERS Safety Report 4954169-0 (Version None)
Quarter: 2006Q1

REPORT INFORMATION
  Report Type: 
  Country: None (occurrence: None)
  Receive Date: 20060323
  Receipt Date: 20060323
  Transmission Date: 20060701
  Serious: Yes (Hospitalization, Other)
  Sender: FDA-Public Use
  Company Number: None

PATIENT
  Sex: Male
  Weight: 69 kg

DRUGS (7)
  1. CYCLOPHOSPHAMIDE [Suspect]
     Indication: DIFFUSE LARGE B-CELL LYMPHOMA
     Dosage: 1417 MG
     Dates: start: 20060313
  2. DOXORUBICIN HCL [Suspect]
     Dosage: 76 MG
     Dates: start: 20060312
  3. ETOPOSIDE [Suspect]
     Dosage: 380 MG
     Dates: start: 20060312
  4. ETOPOSIDE [Suspect]
     Dosage: 380 MG
     Dates: start: 20060321
  5. G-CSF (FILGRASTIM, AMGEN) [Suspect]
     Dosage: 3000 MCG
     Dates: start: 20060321
  6. PREDNISONE [Suspect]
     Dosage: 550 MG
     Dates: start: 20060313
  7. VINCRISTINE SULFATE [Suspect]
     Dosage: 3.04 MG
     Dates: start: 20060312

REACTIONS (1)
  - DEHYDRATION [None]
